FAERS Safety Report 6539714-6 (Version None)
Quarter: 2010Q1

REPORT INFORMATION
  Report Type: 
  Country: None (occurrence: None)
  Receive Date: 20100115
  Receipt Date: 20100107
  Transmission Date: 20100710
  Serious: Yes (Hospitalization)
  Sender: FDA-Public Use
  Company Number: US-SANOFI-AVENTIS-2010SA001895

PATIENT
  Age: 74 Year
  Sex: Male

DRUGS (4)
  1. LANTUS [Suspect]
     Indication: TYPE 1 DIABETES MELLITUS
     Dosage: DOSE:40 UNIT(S)
     Route: 058
  2. APIDRA [Suspect]
     Indication: TYPE 1 DIABETES MELLITUS
     Dosage: SLIDING SCALE
     Route: 058
     Dates: start: 20060101
  3. OPTICLICK [Suspect]
     Indication: TYPE 1 DIABETES MELLITUS
  4. OPTICLICK [Suspect]

REACTIONS (2)
  - CORONARY ARTERIAL STENT INSERTION [None]
  - RENAL ARTERY STENT PLACEMENT [None]
